FAERS Safety Report 15363202 (Version 1)
Quarter: 2018Q3

REPORT INFORMATION
  Report Type: Spontaneous
  Country: CN (occurrence: CN)
  Receive Date: 20180907
  Receipt Date: 20180907
  Transmission Date: 20181010
  Serious: Yes (Hospitalization, Other)
  Sender: FDA-Public Use
  Company Number: CN-BAUSCH-BL-2018-024035

PATIENT
  Age: 7 Year
  Sex: Male

DRUGS (8)
  1. VINCRISTINE [Suspect]
     Active Substance: VINCRISTINE
     Indication: T-CELL TYPE ACUTE LEUKAEMIA
     Dosage: CYCLICAL
     Route: 065
     Dates: start: 201711
  2. DEXAMETHASONE. [Suspect]
     Active Substance: DEXAMETHASONE
     Indication: T-CELL TYPE ACUTE LEUKAEMIA
     Dosage: CARRIED OUT REGULARLY, CYCLICAL
     Route: 065
     Dates: start: 201711
  3. AZATHIOPRINE. [Suspect]
     Active Substance: AZATHIOPRINE
     Indication: T-CELL TYPE ACUTE LEUKAEMIA
     Dosage: CYCLICAL
     Route: 065
     Dates: start: 201711
  4. CYTARABINE. [Suspect]
     Active Substance: CYTARABINE
     Route: 037
     Dates: start: 201711
  5. METHOTREXATE. [Suspect]
     Active Substance: METHOTREXATE
     Indication: T-CELL TYPE ACUTE LEUKAEMIA
     Dosage: (1G/M2) CYCLICAL
     Route: 065
     Dates: start: 201711
  6. METHOTREXATE. [Suspect]
     Active Substance: METHOTREXATE
     Route: 037
     Dates: start: 201711
  7. CYTARABINE. [Suspect]
     Active Substance: CYTARABINE
     Indication: T-CELL TYPE ACUTE LEUKAEMIA
     Dosage: (2G/M2)CYCLICAL
     Route: 065
     Dates: start: 201711
  8. DEXAMETHASONE. [Suspect]
     Active Substance: DEXAMETHASONE
     Indication: T-CELL TYPE ACUTE LEUKAEMIA
     Dosage: INJECTION
     Route: 037
     Dates: start: 201711

REACTIONS (3)
  - Pleural effusion [Unknown]
  - Bone marrow failure [Unknown]
  - Mucormycosis [Recovered/Resolved]

NARRATIVE: CASE EVENT DATE: 2015
